FAERS Safety Report 4781598-0 (Version None)
Quarter: 2005Q3

REPORT INFORMATION
  Report Type: 
  Country: None (occurrence: None)
  Receive Date: 20050927
  Receipt Date: 20050919
  Transmission Date: 20060218
  Serious: Yes (Hospitalization)
  Sender: FDA-Public Use
  Company Number: 2005-129975-NL

PATIENT
  Age: 19 Year
  Sex: Female

DRUGS (7)
  1. MIRTAZAPINE [Suspect]
     Indication: DEPRESSION
     Dosage: 15 MG, ORAL
     Route: 048
     Dates: start: 20050407, end: 20050623
  2. PANCREATIN [Concomitant]
  3. FLUCLOXACILLIN [Concomitant]
  4. RETINOL [Concomitant]
  5. VITAMIN E [Concomitant]
  6. SERETIDE ^ALLEN + HANBURYS LTD^ [Concomitant]
  7. TOCOPHEROL CONCENTRATE CAP [Concomitant]

REACTIONS (7)
  - ALANINE AMINOTRANSFERASE INCREASED [None]
  - ASPARTATE AMINOTRANSFERASE INCREASED [None]
  - BLOOD ALKALINE PHOSPHATASE INCREASED [None]
  - DRUG WITHDRAWAL SYNDROME [None]
  - MALAISE [None]
  - MYOSITIS [None]
  - RHABDOMYOLYSIS [None]
